FAERS Safety Report 5058205-5 (Version None)
Quarter: 2006Q3

REPORT INFORMATION
  Report Type: 
  Country: None (occurrence: None)
  Receive Date: 20060721
  Receipt Date: 20060712
  Transmission Date: 20061208
  Serious: Yes (Hospitalization)
  Sender: FDA-Public Use
  Company Number: PHBS2006IT10498

PATIENT
  Age: 64 Year
  Sex: Female

DRUGS (2)
  1. ZOMETA [Suspect]
     Indication: BREAST CANCER
     Dosage: 4 MG, QMO
     Route: 042
     Dates: start: 20040101, end: 20050401
  2. FEMARA [Concomitant]
     Route: 065

REACTIONS (1)
  - OSTEOMYELITIS [None]
